FAERS Safety Report 8906262 (Version 2)
Quarter: 2013Q1

REPORT INFORMATION
  Report Type: Spontaneous
  Country: DE (occurrence: None)
  Receive Date: 20121107
  Receipt Date: 20121218
  Transmission Date: 20140127
  Serious: Yes (Hospitalization)
  Sender: FDA-Public Use
  Company Number: GER/GER/12/0026465

PATIENT
  Age: 80 Year
  Sex: Female

DRUGS (1)
  1. ALENDRONIC ACID [Suspect]
     Indication: PRODUCT USED FOR UNKNOWN INDICATION
     Dosage: 1 IN 1 WK
     Route: 048
     Dates: start: 201112, end: 201202

REACTIONS (6)
  - Melaena [None]
  - Decreased appetite [None]
  - Constipation [None]
  - Loss of consciousness [None]
  - Faeces discoloured [None]
  - Duodenal ulcer [None]
